FAERS Safety Report 5762145-3 (Version None)
Quarter: 2008Q2

REPORT INFORMATION
  Report Type: 
  Country: None (occurrence: None)
  Receive Date: 20080604
  Receipt Date: 20080422
  Transmission Date: 20081010
  Serious: No
  Sender: FDA-Public Use
  Company Number: DSM-2007-00220

PATIENT
  Age: 58 Year
  Sex: Female

DRUGS (1)
  1. OLMESARTAN MEDOXOMIL [Suspect]
     Indication: HYPERTENSION
     Dosage: 10 MG (10 MG, 1 IN 1 D), ORAL
     Route: 048
     Dates: start: 20070318, end: 20070402

REACTIONS (2)
  - DIZZINESS [None]
  - HYPOTENSION [None]
